FAERS Safety Report 4534844-2 (Version None)
Quarter: 2004Q4

REPORT INFORMATION
  Report Type: 
  Country: None (occurrence: None)
  Receive Date: 20041214
  Receipt Date: 20041016
  Transmission Date: 20050328
  Serious: No
  Sender: FDA-Public Use
  Company Number: 2004239429US

PATIENT
  Sex: Female

DRUGS (1)
  1. BEXTRA [Suspect]
     Dosage: 10 MG

REACTIONS (5)
  - BLISTER [None]
  - DRY SKIN [None]
  - HAEMORRHAGE [None]
  - RECTAL HAEMORRHAGE [None]
  - TINEA INFECTION [None]
